FAERS Safety Report 18554778 (Version 2)
Quarter: 2023Q2

REPORT INFORMATION
  Report Type: Spontaneous
  Country: KR (occurrence: KR)
  Receive Date: 20201127
  Receipt Date: 20230607
  Transmission Date: 20230721
  Serious: Yes (Hospitalization, Other)
  Sender: FDA-Public Use
  Company Number: KR-JNJFOC-20201132876

PATIENT
  Age: 45 Year
  Sex: Female

DRUGS (9)
  1. PALIPERIDONE PALMITATE [Suspect]
     Active Substance: PALIPERIDONE PALMITATE
     Indication: Schizophrenia
     Route: 030
  2. PALIPERIDONE PALMITATE [Suspect]
     Active Substance: PALIPERIDONE PALMITATE
  3. PALIPERIDONE PALMITATE [Suspect]
     Active Substance: PALIPERIDONE PALMITATE
  4. INVEGA [Suspect]
     Active Substance: PALIPERIDONE
     Indication: Schizophrenia
     Route: 048
  5. CLOZAPINE [Concomitant]
     Active Substance: CLOZAPINE
     Dosage: 25 MG DOSE INCREASED AND AGAIN 25 MG DOSE REDUCED.
     Route: 065
  6. ARIPIPRAZOLE [Concomitant]
     Active Substance: ARIPIPRAZOLE
     Dosage: DOSE REDUCED TO 5 MG.
     Route: 065
  7. QUETIAPINE [Concomitant]
     Active Substance: QUETIAPINE
     Route: 065
  8. QUETIAPINE [Concomitant]
     Active Substance: QUETIAPINE
     Route: 065
  9. BLONANSERIN [Concomitant]
     Active Substance: BLONANSERIN
     Route: 065

REACTIONS (6)
  - Intentional self-injury [Not Recovered/Not Resolved]
  - Schizophrenia [Not Recovered/Not Resolved]
  - Anal incontinence [Unknown]
  - Salivary hypersecretion [Unknown]
  - Somnolence [Unknown]
  - Extrapyramidal disorder [Unknown]
